FAERS Safety Report 6910827-X (Version None)
Quarter: 2010Q3

REPORT INFORMATION
  Report Type: 
  Country: None (occurrence: None)
  Receive Date: 20100806
  Receipt Date: 20100728
  Transmission Date: 20110219
  Serious: Yes (Other)
  Sender: FDA-Public Use
  Company Number: US-JNJFOC-20100708743

PATIENT
  Sex: Female
  Weight: 56.7 kg

DRUGS (2)
  1. REMICADE [Suspect]
     Indication: CROHN'S DISEASE
     Route: 042
  2. ASACOL [Concomitant]
     Indication: CROHN'S DISEASE

REACTIONS (5)
  - ALCOHOL INTOLERANCE [None]
  - ANAEMIA [None]
  - DRUG INEFFECTIVE [None]
  - FISTULA [None]
  - HYPOGLYCAEMIA [None]
